FAERS Safety Report 9349469 (Version 1)
Quarter: 2013Q2

REPORT INFORMATION
  Report Type: Spontaneous
  Country: DE (occurrence: None)
  Receive Date: 20130611
  Receipt Date: 20130611
  Transmission Date: 20140414
  Serious: Yes (Other)
  Sender: FDA-Public Use
  Company Number: PAN-2012-000340

PATIENT
  Sex: 0

DRUGS (1)
  1. TACROLIMUS [Suspect]
     Indication: PRODUCT USED FOR UNKNOWN INDICATION
     Route: 064

REACTIONS (3)
  - Cytomegalovirus infection [None]
  - Maternal drugs affecting foetus [None]
  - T-lymphocyte count decreased [None]
